FAERS Safety Report 21529399 (Version 1)
Quarter: 2022Q4

REPORT INFORMATION
  Report Type: Spontaneous
  Country: SE (occurrence: SE)
  Receive Date: 20221031
  Receipt Date: 20221031
  Transmission Date: 20230112
  Serious: Yes (Other)
  Sender: FDA-Public Use
  Company Number: None

PATIENT
  Age: 29 Year
  Sex: Male

DRUGS (4)
  1. ABILIFY MAINTENA [Suspect]
     Active Substance: ARIPIPRAZOLE
     Indication: Product used for unknown indication
     Dosage: 400 MG
     Route: 030
     Dates: start: 20191012
  2. UREA [Concomitant]
     Active Substance: UREA
     Indication: Product used for unknown indication
     Dosage: UNK
     Route: 065
  3. LEVOMEPROMAZINE [Concomitant]
     Active Substance: LEVOMEPROMAZINE
     Indication: Product used for unknown indication
     Dosage: UNK
     Route: 065
  4. OMEPRAZOLE [Concomitant]
     Active Substance: OMEPRAZOLE
     Indication: Product used for unknown indication
     Dosage: UNK
     Route: 065

REACTIONS (2)
  - Disturbance in attention [Unknown]
  - Akathisia [Unknown]

NARRATIVE: CASE EVENT DATE: 20220711
